FAERS Safety Report 17882331 (Version 1)
Quarter: 2020Q2

REPORT INFORMATION
  Report Type: Spontaneous
  Country: CN (occurrence: CN)
  Receive Date: 20200610
  Receipt Date: 20200610
  Transmission Date: 20200714
  Serious: Yes (Other)
  Sender: FDA-Public Use
  Company Number: CN-009507513-2006CHN002115

PATIENT
  Age: 55 Year
  Sex: Female

DRUGS (25)
  1. PEMBROLIZUMAB. [Suspect]
     Active Substance: PEMBROLIZUMAB
     Indication: CERVIX CARCINOMA STAGE IV
     Dosage: 2 MILLIGRAM/KILOGRAM, Q3W (100 MG)
     Dates: start: 20181115, end: 20181115
  2. PEMBROLIZUMAB. [Suspect]
     Active Substance: PEMBROLIZUMAB
     Dosage: 2 MILLIGRAM/KILOGRAM, Q3W
     Dates: start: 20181210, end: 20181210
  3. PEMBROLIZUMAB. [Suspect]
     Active Substance: PEMBROLIZUMAB
     Dosage: 2 MILLIGRAM/KILOGRAM, Q3W
     Dates: start: 20190128, end: 20190128
  4. PEMBROLIZUMAB. [Suspect]
     Active Substance: PEMBROLIZUMAB
     Dosage: 2 MILLIGRAM/KILOGRAM, Q3W
     Dates: start: 20190423, end: 20190423
  5. PEMBROLIZUMAB. [Suspect]
     Active Substance: PEMBROLIZUMAB
     Dosage: 2 MILLIGRAM/KILOGRAM, Q3W
     Dates: start: 20190606, end: 20190606
  6. PEMBROLIZUMAB. [Suspect]
     Active Substance: PEMBROLIZUMAB
     Dosage: 2 MILLIGRAM/KILOGRAM, Q3W
     Dates: start: 20190719, end: 20190719
  7. PACLITAXEL ALBUMIN [Suspect]
     Active Substance: PACLITAXEL
     Indication: CERVIX CARCINOMA STAGE IV
     Dosage: 260 MILLIGRAM/SQ. METER, UNK
     Dates: start: 20181115, end: 20181115
  8. PEMBROLIZUMAB. [Suspect]
     Active Substance: PEMBROLIZUMAB
     Dosage: 2 MILLIGRAM/KILOGRAM, Q3W
     Dates: start: 20190331, end: 20190331
  9. PEMBROLIZUMAB. [Suspect]
     Active Substance: PEMBROLIZUMAB
     Dosage: 2 MILLIGRAM/KILOGRAM, Q3W
     Dates: start: 20190623, end: 20190623
  10. PACLITAXEL ALBUMIN [Suspect]
     Active Substance: PACLITAXEL
     Dosage: 260 MILLIGRAM/SQ. METER, UNK
     Dates: start: 20190128, end: 20190128
  11. CARBOPLATIN. [Suspect]
     Active Substance: CARBOPLATIN
     Dosage: AUC 5
     Dates: start: 20190331, end: 20190331
  12. PEMBROLIZUMAB. [Suspect]
     Active Substance: PEMBROLIZUMAB
     Dosage: 2 MILLIGRAM/KILOGRAM, Q3W
     Dates: start: 20190221, end: 20190221
  13. PEMBROLIZUMAB. [Suspect]
     Active Substance: PEMBROLIZUMAB
     Dosage: 2 MILLIGRAM/KILOGRAM, Q3W
     Dates: start: 20190402, end: 20190402
  14. PEMBROLIZUMAB. [Suspect]
     Active Substance: PEMBROLIZUMAB
     Dosage: 2 MILLIGRAM/KILOGRAM, Q3W
     Dates: start: 20190812, end: 20190812
  15. PACLITAXEL ALBUMIN [Suspect]
     Active Substance: PACLITAXEL
     Dosage: 260 MILLIGRAM/SQ. METER, UNK (300 MG)
     Dates: start: 20181210, end: 20181210
  16. PACLITAXEL ALBUMIN [Suspect]
     Active Substance: PACLITAXEL
     Dosage: 260 MILLIGRAM/SQ. METER, UNK
     Dates: start: 20190107, end: 20190107
  17. PACLITAXEL ALBUMIN [Suspect]
     Active Substance: PACLITAXEL
     Dosage: 260 MILLIGRAM/SQ. METER, UNK
     Dates: start: 20190221, end: 20190221
  18. CARBOPLATIN. [Suspect]
     Active Substance: CARBOPLATIN
     Dosage: AUC 5
     Dates: start: 20190107, end: 20190107
  19. CARBOPLATIN. [Suspect]
     Active Substance: CARBOPLATIN
     Dosage: AUC 5
     Dates: start: 20190221, end: 20190221
  20. PEMBROLIZUMAB. [Suspect]
     Active Substance: PEMBROLIZUMAB
     Dosage: 2 MILLIGRAM/KILOGRAM, Q3W
     Dates: start: 20190516, end: 20190516
  21. PACLITAXEL ALBUMIN [Suspect]
     Active Substance: PACLITAXEL
     Dosage: 260 MILLIGRAM/SQ. METER, UNK
     Dates: start: 20190331, end: 20190331
  22. CARBOPLATIN. [Suspect]
     Active Substance: CARBOPLATIN
     Indication: CERVIX CARCINOMA STAGE IV
     Dosage: AUC 5
     Dates: start: 20181115, end: 20181115
  23. CARBOPLATIN. [Suspect]
     Active Substance: CARBOPLATIN
     Dosage: AUC 5
     Dates: start: 20181210, end: 20181210
  24. PEMBROLIZUMAB. [Suspect]
     Active Substance: PEMBROLIZUMAB
     Dosage: 2 MILLIGRAM/KILOGRAM, Q3W
     Dates: start: 20190107, end: 20190107
  25. CARBOPLATIN. [Suspect]
     Active Substance: CARBOPLATIN
     Dosage: AUC 5
     Dates: start: 20190128, end: 20190128

REACTIONS (3)
  - Bone marrow failure [Unknown]
  - Therapeutic product effect decreased [Unknown]
  - Inappropriate schedule of product administration [Unknown]

NARRATIVE: CASE EVENT DATE: 20181210
